FAERS Safety Report 9234496 (Version 1)
Quarter: 2013Q2

REPORT INFORMATION
  Report Type: Spontaneous
  Country: US (occurrence: US)
  Receive Date: 20130416
  Receipt Date: 20130416
  Transmission Date: 20140414
  Serious: No
  Sender: FDA-Public Use
  Company Number: US-BANPHARM-20120253

PATIENT
  Age: 60 Year
  Sex: Female
  Weight: 44.79 kg

DRUGS (3)
  1. ALEVE LIQUID GELS 220 MG [Suspect]
     Indication: TOOTH INFECTION
     Dosage: 6 DF, ONCE,
     Route: 048
     Dates: start: 2012
  2. LEVOTHYROXINE [Concomitant]
  3. VITAMINS [Concomitant]

REACTIONS (3)
  - Feeling abnormal [Recovered/Resolved]
  - Incorrect dose administered [Unknown]
  - Incorrect drug administration duration [Unknown]
